FAERS Safety Report 5317206-X (Version None)
Quarter: 2007Q2

REPORT INFORMATION
  Report Type: 
  Country: None (occurrence: None)
  Receive Date: 20070504
  Receipt Date: 20060601
  Transmission Date: 20071010
  Serious: Yes (Disabling, Other)
  Sender: FDA-Public Use
  Company Number: US-PFIZER INC-2007024705

PATIENT
  Age: 53 Year
  Sex: Female

DRUGS (3)
  1. LIPITOR [Suspect]
     Indication: BLOOD CHOLESTEROL
     Dates: start: 20041101, end: 20050829
  2. ZYRTEC [Concomitant]
     Indication: URTICARIA
  3. ALEVE [Concomitant]
     Indication: PAIN

REACTIONS (16)
  - ACTIVITIES OF DAILY LIVING IMPAIRED [None]
  - AUTOIMMUNE DISORDER [None]
  - DRY EYE [None]
  - FACE PRESENTATION [None]
  - FATIGUE [None]
  - HEADACHE [None]
  - HYPOAESTHESIA [None]
  - INSOMNIA [None]
  - MUSCLE ATROPHY [None]
  - MUSCLE SPASMS [None]
  - MUSCULOSKELETAL STIFFNESS [None]
  - PAIN [None]
  - PARAESTHESIA [None]
  - SKIN DISORDER [None]
  - SWELLING [None]
  - WEIGHT INCREASED [None]
